FAERS Safety Report 9123301 (Version 1)
Quarter: 2013Q1

REPORT INFORMATION
  Report Type: Spontaneous
  Country: US (occurrence: None)
  Receive Date: 20130226
  Receipt Date: 20130226
  Transmission Date: 20140127
  Serious: Yes (Other)
  Sender: FDA-Public Use
  Company Number: None

PATIENT
  Age: 57 Year
  Sex: Female
  Weight: 61.4 kg

DRUGS (1)
  1. LEVOTHYROXINE [Suspect]
     Dates: start: 20110101, end: 20120924

REACTIONS (9)
  - Alopecia [None]
  - Product substitution issue [None]
  - Depression [None]
  - Cough [None]
  - Sleep disorder [None]
  - Abdominal pain upper [None]
  - Diarrhoea [None]
  - Constipation [None]
  - Gastrooesophageal reflux disease [None]
